FAERS Safety Report 5989906-X (Version None)
Quarter: 2008Q4

REPORT INFORMATION
  Report Type: 
  Country: None (occurrence: None)
  Receive Date: 20081210
  Receipt Date: 20081124
  Transmission Date: 20090506
  Serious: Yes (Other)
  Sender: FDA-Public Use
  Company Number: JPI-P-005513

PATIENT
  Age: 86 Year
  Sex: Male

DRUGS (5)
  1. LUVOX [Suspect]
     Indication: DRUG USE FOR UNKNOWN INDICATION
     Dosage: (100 MG, 1 D), ORAL : (100 MG), ORAL
     Route: 048
     Dates: start: 20040101, end: 20061001
  2. LUVOX [Suspect]
     Indication: DRUG USE FOR UNKNOWN INDICATION
     Dosage: (100 MG, 1 D), ORAL : (100 MG), ORAL
     Route: 048
     Dates: start: 20061101
  3. PERINDOPRIL [Concomitant]
  4. ACETYLSALICYLIC ACID [Concomitant]
  5. VITAMIN B-12 [Concomitant]

REACTIONS (7)
  - COUGH [None]
  - DYSPHAGIA [None]
  - HYPERTENSION [None]
  - HYPOTENSION [None]
  - INAPPROPRIATE ANTIDIURETIC HORMONE SECRETION [None]
  - OEDEMA PERIPHERAL [None]
  - TACHYCARDIA [None]
